FAERS Safety Report 6706637-9 (Version None)
Quarter: 2010Q2

REPORT INFORMATION
  Report Type: 
  Country: None (occurrence: None)
  Receive Date: 20100503
  Receipt Date: 20100426
  Transmission Date: 20101027
  Serious: Yes (Other)
  Sender: FDA-Public Use
  Company Number: US-TEVA-226322USA

PATIENT
  Sex: Female

DRUGS (5)
  1. CLARAVIS [Suspect]
     Route: 048
     Dates: start: 20100210, end: 20100224
  2. CYANOCOBALAMIN [Concomitant]
  3. FOLIC ACID [Concomitant]
  4. NAPROXEN [Concomitant]
  5. ORAL CONTRACEPTIVE NOS [Concomitant]

REACTIONS (2)
  - ABDOMINAL PAIN UPPER [None]
  - UNINTENDED PREGNANCY [None]
